FAERS Safety Report 20205716 (Version 2)
Quarter: 2022Q1

REPORT INFORMATION
  Report Type: Spontaneous
  Country: US (occurrence: US)
  Receive Date: 20211220
  Receipt Date: 20220211
  Transmission Date: 20220423
  Serious: Yes (Death)
  Sender: FDA-Public Use
  Company Number: US-JNJFOC-20211236667

PATIENT
  Age: 82 Year
  Sex: Male

DRUGS (3)
  1. XARELTO [Suspect]
     Active Substance: RIVAROXABAN
     Indication: Product used for unknown indication
     Route: 048
     Dates: start: 20191010
  2. CARBIDOPA [Concomitant]
     Active Substance: CARBIDOPA
     Indication: Tremor
     Dates: start: 2016
  3. LEVODOPA [Concomitant]
     Active Substance: LEVODOPA
     Indication: Tremor
     Dates: start: 2016

REACTIONS (1)
  - Death [Fatal]
